FAERS Safety Report 11615499 (Version 1)
Quarter: 2015Q4

REPORT INFORMATION
  Report Type: Spontaneous
  Country: US (occurrence: US)
  Receive Date: 20151009
  Receipt Date: 20151009
  Transmission Date: 20160304
  Serious: No
  Sender: FDA-Public Use
  Company Number: US-BIOGENIDEC-2015BI134239

PATIENT
  Age: 62 Year
  Sex: Female

DRUGS (16)
  1. VITAMIN E [Concomitant]
     Active Substance: .ALPHA.-TOCOPHEROL
  2. REBIF [Concomitant]
     Active Substance: INTERFERON BETA-1A
     Dates: start: 200310
  3. CRANBERRY. [Concomitant]
     Active Substance: CRANBERRY
  4. GLUCOSAMIN CHONDROITIN [Concomitant]
  5. ZANAFLEX [Concomitant]
     Active Substance: TIZANIDINE HYDROCHLORIDE
  6. CALCIUM WITH D3 [Concomitant]
  7. METOPROLOL [Concomitant]
     Active Substance: METOPROLOL
  8. OXYBUTYNIN [Concomitant]
     Active Substance: OXYBUTYNIN
  9. PRESERVISION AREDS [Concomitant]
     Active Substance: MINERALS\VITAMINS
  10. PANTOPRAZOLE [Concomitant]
     Active Substance: PANTOPRAZOLE SODIUM
  11. TECFIDERA [Suspect]
     Active Substance: DIMETHYL FUMARATE
     Indication: MULTIPLE SCLEROSIS
     Route: 048
     Dates: start: 20130618
  12. ATORVASTATIN [Concomitant]
     Active Substance: ATORVASTATIN
  13. ASPIRIN. [Concomitant]
     Active Substance: ASPIRIN
  14. PLAVIX [Concomitant]
     Active Substance: CLOPIDOGREL BISULFATE
  15. FISH OIL [Concomitant]
     Active Substance: FISH OIL
  16. VITAMIN D [Concomitant]
     Active Substance: CHOLECALCIFEROL

REACTIONS (7)
  - Nausea [Unknown]
  - Abdominal discomfort [Unknown]
  - Vomiting [Recovered/Resolved]
  - Hot flush [Recovered/Resolved]
  - Urinary tract infection [Unknown]
  - Abdominal pain [Unknown]
  - Gastrointestinal disorder [Unknown]

NARRATIVE: CASE EVENT DATE: 2013
